FAERS Safety Report 12209245 (Version 1)
Quarter: 2016Q1

REPORT INFORMATION
  Report Type: Spontaneous
  Country: JP (occurrence: JP)
  Receive Date: 20160324
  Receipt Date: 20160324
  Transmission Date: 20160526
  Serious: Yes (Death)
  Sender: FDA-Public Use
  Company Number: JP-MALLINCKRODT-T201601056

PATIENT
  Age: 66 Year
  Sex: Male

DRUGS (13)
  1. BFLUID [Concomitant]
     Active Substance: AMINO ACIDS\DEXTROSE\ELECTROLYTES NOS\VITAMINS
     Dosage: 500ML
     Route: 051
     Dates: start: 20151217, end: 20160108
  2. BETAMETHASONE. [Concomitant]
     Active Substance: BETAMETHASONE
     Dosage: 1MG
     Route: 048
     Dates: end: 20160107
  3. METHADONE [Suspect]
     Active Substance: METHADONE HYDROCHLORIDE
     Dosage: 5MG (5MG TOTAL DAILY DOSE)
     Route: 048
     Dates: start: 20151209, end: 20160209
  4. CALONAL [Concomitant]
     Active Substance: ACETAMINOPHEN
     Indication: ANALGESIC THERAPY
     Dosage: 600 MG PRN
     Route: 048
     Dates: start: 20151130
  5. GLUCOSE [Concomitant]
     Active Substance: DEXTROSE
     Dosage: 200 ML
     Route: 051
     Dates: start: 20160123, end: 20160210
  6. LOXOPROFEN [Concomitant]
     Active Substance: LOXOPROFEN
     Indication: ANALGESIC THERAPY
     Dosage: 180MG
     Route: 048
     Dates: end: 20160107
  7. KN NO.3 [Concomitant]
     Active Substance: DEXTROSE\POTASSIUM CHLORIDE\SODIUM CHLORIDE\SODIUM LACTATE
     Dosage: 400 ML
     Route: 051
     Dates: start: 20160108, end: 20160122
  8. DEXART [Concomitant]
     Active Substance: DEXAMETHASONE SODIUM PHOSPHATE
     Dosage: 1.65 MG
     Route: 051
     Dates: start: 20160108, end: 20160210
  9. CYTOTEC [Concomitant]
     Active Substance: MISOPROSTOL
     Indication: PROPHYLAXIS
     Dosage: 600 MG
     Route: 048
     Dates: end: 20160107
  10. METHADONE [Suspect]
     Active Substance: METHADONE HYDROCHLORIDE
     Indication: CANCER PAIN
     Dosage: 5MG (15MG TOTAL DAILY DOSE)
     Route: 048
     Dates: start: 20151130, end: 20151204
  11. METHADONE [Suspect]
     Active Substance: METHADONE HYDROCHLORIDE
     Dosage: 5MG (10MG TOTAL DAILY DOSE)
     Route: 048
     Dates: start: 20151205, end: 20151208
  12. MAGMITT [Concomitant]
     Active Substance: MAGNESIUM OXIDE
     Dosage: 990 MG
     Route: 048
     Dates: end: 20160107
  13. ROPION [Concomitant]
     Active Substance: FLURBIPROFEN AXETIL
     Indication: ANALGESIC THERAPY
     Dosage: 100 MG
     Route: 051
     Dates: start: 20160108, end: 20160210

REACTIONS (3)
  - Somnolence [Recovered/Resolved]
  - Oedema [Not Recovered/Not Resolved]
  - Gastric cancer [Fatal]

NARRATIVE: CASE EVENT DATE: 20151204
